FAERS Safety Report 5648796-5 (Version None)
Quarter: 2008Q1

REPORT INFORMATION
  Report Type: 
  Country: None (occurrence: None)
  Receive Date: 20080131
  Receipt Date: 20071029
  Transmission Date: 20080703
  Serious: No
  Sender: FDA-Public Use
  Company Number: US200706006327

PATIENT
  Age: 65 Year
  Sex: Male
  Weight: 107.9 kg

DRUGS (6)
  1. BYETTA [Suspect]
     Indication: TYPE 2 DIABETES MELLITUS
     Dosage: 5 UG, 2/D, SUBCUTANEOUS ; 10 UG, 2/D, SUBCUTANEOUS
     Route: 058
     Dates: start: 20070201, end: 20070301
  2. BYETTA [Suspect]
     Indication: TYPE 2 DIABETES MELLITUS
     Dosage: 5 UG, 2/D, SUBCUTANEOUS ; 10 UG, 2/D, SUBCUTANEOUS
     Route: 058
     Dates: start: 20070301
  3. NOVOLOG [Concomitant]
  4. LANTUS [Concomitant]
  5. NEXIUM [Concomitant]
  6. CINNAMON (CINNAMOMUM VERUM) [Concomitant]

REACTIONS (9)
  - ABDOMINAL PAIN UPPER [None]
  - BLOOD GLUCOSE INCREASED [None]
  - FATIGUE [None]
  - HYPERHIDROSIS [None]
  - INJECTION SITE DISCOMFORT [None]
  - MALAISE [None]
  - THIRST [None]
  - VISUAL ACUITY REDUCED [None]
  - WEIGHT DECREASED [None]
